FAERS Safety Report 9260426 (Version 1)
Quarter: 2013Q2

REPORT INFORMATION
  Report Type: Spontaneous
  Country: US (occurrence: US)
  Receive Date: 20130429
  Receipt Date: 20130429
  Transmission Date: 20140414
  Serious: Yes (Hospitalization, Other)
  Sender: FDA-Public Use
  Company Number: US-NOVOPROD-373090

PATIENT
  Age: 7 Year
  Sex: Male

DRUGS (4)
  1. NOVOSEVEN RT [Suspect]
     Indication: HAEMOPHILIA
     Dosage: UNKNOWN
     Route: 065
  2. FEIBA [Suspect]
     Indication: HAEMOPHILIA
     Dosage: UNKNOWN
     Route: 065
  3. AMICAR [Suspect]
     Indication: PRODUCT USED FOR UNKNOWN INDICATION
     Dosage: UNKNOWN
     Route: 065
  4. VIOXX [Suspect]
     Indication: PRODUCT USED FOR UNKNOWN INDICATION
     Dosage: UNKNOWN
     Route: 065

REACTIONS (7)
  - Muscle haemorrhage [Unknown]
  - Superior vena cava syndrome [Unknown]
  - Retroperitoneal haemorrhage [Unknown]
  - Renal haemorrhage [Unknown]
  - Thrombosis [Not Recovered/Not Resolved]
  - Pain [Unknown]
  - Headache [Unknown]
